FAERS Safety Report 17550143 (Version 4)
Quarter: 2022Q2

REPORT INFORMATION
  Report Type: Spontaneous
  Country: JP (occurrence: JP)
  Receive Date: 20200317
  Receipt Date: 20220415
  Transmission Date: 20220720
  Serious: Yes (Other)
  Sender: FDA-Public Use
  Company Number: JP-PFIZER INC-2020108894

PATIENT
  Age: 9 Year
  Sex: Male
  Weight: 32.8 kg

DRUGS (16)
  1. METHOTREXATE [Suspect]
     Active Substance: METHOTREXATE
     Indication: T-cell type acute leukaemia
     Dosage: 12 MG, 1X/DAY
     Route: 041
     Dates: start: 20190917
  2. METHOTREXATE [Suspect]
     Active Substance: METHOTREXATE
     Dosage: 5200 MG, DAILY
     Route: 041
     Dates: start: 20191230, end: 20200210
  3. MERCAPTOPURINE [Concomitant]
     Active Substance: MERCAPTOPURINE
     Dosage: 61 MG
     Route: 048
     Dates: start: 20191031, end: 20200216
  4. AMLODIPINE BESYLATE [Concomitant]
     Active Substance: AMLODIPINE BESYLATE
     Dosage: UNK
     Route: 048
     Dates: start: 20200109
  5. HEPARIN SODIUM [Concomitant]
     Active Substance: HEPARIN SODIUM
     Dosage: UNK
     Dates: start: 20190912
  6. POTASSIUM CHLORIDE\SODIUM CHLORIDE\SODIUM LACTATE [Concomitant]
     Active Substance: POTASSIUM CHLORIDE\SODIUM CHLORIDE\SODIUM LACTATE
     Dosage: UNK
     Dates: start: 20200101
  7. MEYLON [Concomitant]
     Active Substance: SODIUM BICARBONATE
     Dosage: UNK
     Dates: start: 20190913
  8. CYTARABINE [Concomitant]
     Active Substance: CYTARABINE
     Dosage: 30 MG
     Dates: start: 20190925, end: 20200211
  9. PREDNISOLONE SODIUM SUCCINATE [Concomitant]
     Active Substance: PREDNISOLONE SODIUM SUCCINATE
     Dosage: 10 MG
     Dates: start: 20190913, end: 20200211
  10. SOLU-CORTEF [Concomitant]
     Active Substance: HYDROCORTISONE SODIUM SUCCINATE
     Dosage: 100 MG
     Dates: start: 20191023, end: 20200212
  11. DIAMOX SEQUELS [Concomitant]
     Active Substance: ACETAZOLAMIDE
     Dosage: 250 MG, 4X/DAY
     Dates: start: 20191230, end: 20200211
  12. CITOSOL [Concomitant]
     Active Substance: THIAMYLAL SODIUM
     Dosage: UNK
     Dates: start: 20190913, end: 20200212
  13. LEUCOVORIN [Concomitant]
     Active Substance: LEUCOVORIN
     Dosage: UNK
     Dates: start: 20200101, end: 20200213
  14. ASPARAGINASE [Concomitant]
     Active Substance: ASPARAGINASE
     Dosage: UNK
     Dates: start: 20190925, end: 20200212
  15. HYDROCORTISONE [Concomitant]
     Active Substance: HYDROCORTISONE
     Dosage: 3 MG/KG
  16. HYDROCORTISONE [Concomitant]
     Active Substance: HYDROCORTISONE
     Dosage: 5 MG/KG

REACTIONS (7)
  - Multiple endocrine neoplasia [Recovering/Resolving]
  - Drug reaction with eosinophilia and systemic symptoms [Unknown]
  - Erythema [Recovering/Resolving]
  - Pain [Unknown]
  - Pigmentation disorder [Unknown]
  - Skin exfoliation [Recovered/Resolved]
  - Palmar-plantar erythrodysaesthesia syndrome [Recovered/Resolved]

NARRATIVE: CASE EVENT DATE: 20200116
